FAERS Safety Report 10346015 (Version 2)
Quarter: 2014Q3

REPORT INFORMATION
  Report Type: Report from Study
  Country: ZA (occurrence: ZA)
  Receive Date: 20140728
  Receipt Date: 20140806
  Transmission Date: 20150326
  Serious: Yes (Death)
  Sender: FDA-Public Use
  Company Number: PHHY2014ZA092173

PATIENT
  Age: 68 Year
  Sex: Male

DRUGS (1)
  1. GLIVEC [Suspect]
     Active Substance: IMATINIB MESYLATE
     Indication: GASTROINTESTINAL STROMAL TUMOUR
     Dosage: 400 MG, UNK

REACTIONS (10)
  - Malignant neoplasm progression [Fatal]
  - Abdominal distension [Fatal]
  - Cachexia [Fatal]
  - Facial wasting [Fatal]
  - Abdominal mass [Fatal]
  - Sinus tachycardia [Fatal]
  - Gastrointestinal stromal tumour [Fatal]
  - Dehydration [Fatal]
  - Heart rate increased [Fatal]
  - Electrolyte imbalance [Fatal]

NARRATIVE: CASE EVENT DATE: 20140429
